FAERS Safety Report 25176930 (Version 1)
Quarter: 2025Q2

REPORT INFORMATION
  Report Type: Spontaneous
  Country: GB (occurrence: GB)
  Receive Date: 20250409
  Receipt Date: 20250409
  Transmission Date: 20250716
  Serious: Yes (Other)
  Sender: HETERO
  Company Number: GB-MHRA-35194452

PATIENT
  Sex: Male

DRUGS (1)
  1. ATORVASTATIN [Suspect]
     Active Substance: ATORVASTATIN
     Indication: Product used for unknown indication
     Route: 065

REACTIONS (4)
  - Anal haemorrhage [Unknown]
  - Haemorrhoids [Unknown]
  - Proctalgia [Unknown]
  - Constipation [Unknown]
